FAERS Safety Report 18982217 (Version 1)
Quarter: 2021Q1

REPORT INFORMATION
  Report Type: Spontaneous
  Country: GB (occurrence: GB)
  Receive Date: 20210308
  Receipt Date: 20210308
  Transmission Date: 20210420
  Serious: Yes (Hospitalization)
  Sender: FDA-Public Use
  Company Number: GB-TEVA-2021-GB-1884987

PATIENT
  Age: 55 Year
  Sex: Male

DRUGS (12)
  1. COLECALCIFEROL [Concomitant]
     Active Substance: CHOLECALCIFEROL
  2. TAMSULOSIN [Concomitant]
     Active Substance: TAMSULOSIN
  3. DOCUSATE SODIUM. [Concomitant]
     Active Substance: DOCUSATE SODIUM
  4. LAXIDO [Concomitant]
     Active Substance: POLYETHYLENE GLYCOL 3350\POTASSIUM CHLORIDE\SODIUM BICARBONATE\SODIUM CHLORIDE
  5. OMEPRAZOLE. [Concomitant]
     Active Substance: OMEPRAZOLE
  6. PIPERACILLIN AND TAZOBACTAM [Concomitant]
     Active Substance: PIPERACILLIN SODIUM\TAZOBACTAM SODIUM
  7. CLARITHROMYCIN. [Suspect]
     Active Substance: CLARITHROMYCIN
     Route: 065
  8. LITHIUM CARBONATE. [Interacting]
     Active Substance: LITHIUM CARBONATE
     Indication: BIPOLAR DISORDER
     Dosage: 600 MILLIGRAM DAILY; AT NIGHT.
     Route: 048
  9. DEXAMETHASONE. [Concomitant]
     Active Substance: DEXAMETHASONE
  10. HEPARIN [Concomitant]
     Active Substance: HEPARIN SODIUM
  11. OLANZAPINE. [Concomitant]
     Active Substance: OLANZAPINE
  12. LEVOTHYROXINE SODIQUE [Concomitant]
     Active Substance: LEVOTHYROXINE SODIUM

REACTIONS (2)
  - Diabetes insipidus [Recovered/Resolved]
  - Labelled drug-drug interaction medication error [Unknown]

NARRATIVE: CASE EVENT DATE: 20210115
